FAERS Safety Report 7994413-9 (Version None)
Quarter: 2011Q4

REPORT INFORMATION
  Report Type: 
  Country: None (occurrence: None)
  Receive Date: 20111220
  Receipt Date: 20111216
  Transmission Date: 20120403
  Serious: Yes (Death, Hospitalization)
  Sender: FDA-Public Use
  Company Number: CO-BAYER-2011-091597

PATIENT
  Sex: Female

DRUGS (1)
  1. NEXAVAR [Suspect]
     Indication: HEPATIC NEOPLASM MALIGNANT
     Dosage: 1600 MG, DAILY
     Dates: start: 20110921, end: 20110926

REACTIONS (3)
  - GASTROINTESTINAL DISORDER [None]
  - FATIGUE [None]
  - ANEURYSM [None]
